FAERS Safety Report 9399834 (Version 2)
Quarter: 2013Q3

REPORT INFORMATION
  Report Type: Report from Study
  Country: DE (occurrence: DE)
  Receive Date: 20130715
  Receipt Date: 20130902
  Transmission Date: 20140515
  Serious: Yes (Hospitalization)
  Sender: FDA-Public Use
  Company Number: PHHO2013DE009079

PATIENT
  Age: 55 Year
  Sex: Female
  Weight: 59 kg

DRUGS (6)
  1. FTY 720 [Suspect]
     Indication: MULTIPLE SCLEROSIS
     Dosage: 0.5 MG, QD
     Route: 048
     Dates: start: 20110125
  2. ASS [Concomitant]
     Dosage: 100
     Dates: start: 20120703
  3. RAMIPRIL [Concomitant]
     Dates: start: 20120713
  4. METOPROLOL [Concomitant]
     Dates: start: 20120703
  5. SIMVASTATIN [Concomitant]
     Dates: start: 20120713
  6. CLOPIDOGREL [Concomitant]
     Dosage: UNK
     Dates: start: 20120713

REACTIONS (1)
  - Hypertensive crisis [Unknown]
